FAERS Safety Report 4617841-8 (Version None)
Quarter: 2005Q1

REPORT INFORMATION
  Report Type: 
  Country: None (occurrence: None)
  Receive Date: 20050324
  Receipt Date: 20050322
  Transmission Date: 20050727
  Serious: Yes (Other)
  Sender: FDA-Public Use
  Company Number: US-GLAXOSMITHKLINE-A0550911A

PATIENT
  Sex: Male

DRUGS (1)
  1. WELLBUTRIN XL [Suspect]
     Indication: ILL-DEFINED DISORDER
     Route: 048

REACTIONS (6)
  - HALLUCINATION [None]
  - HALLUCINATION, AUDITORY [None]
  - HEADACHE [None]
  - LIBIDO DECREASED [None]
  - PENIS DISORDER [None]
  - TESTICULAR PAIN [None]
